FAERS Safety Report 26092440 (Version 1)
Quarter: 2025Q4

REPORT INFORMATION
  Report Type: Spontaneous
  Country: US (occurrence: None)
  Receive Date: 20251126
  Receipt Date: 20251126
  Transmission Date: 20260117
  Serious: Yes (Other)
  Sender: FDA-CTU
  Company Number: None

PATIENT
  Age: 41 Year
  Sex: Female
  Weight: 65.77 kg

DRUGS (6)
  1. COSMETICS [Suspect]
     Active Substance: COSMETICS
     Indication: Alopecia
     Dosage: FREQUENCY : TWICE A DAY;?OTHER ROUTE : APPLIED TO A SURFACE, USUALLY THE SKIN ;?
     Route: 050
     Dates: start: 20251120, end: 20251120
  2. VITAMINS [Concomitant]
     Active Substance: VITAMINS
  3. JUNEL [Concomitant]
     Active Substance: ETHINYL ESTRADIOL\NORETHINDRONE ACETATE
  4. NEXIUM [Concomitant]
     Active Substance: ESOMEPRAZOLE MAGNESIUM
  5. LEXAPRO [Concomitant]
     Active Substance: ESCITALOPRAM OXALATE
  6. METFORMIN [Concomitant]
     Active Substance: METFORMIN HYDROCHLORIDE

REACTIONS (5)
  - Product odour abnormal [None]
  - Skin burning sensation [None]
  - Product formulation issue [None]
  - Allergic reaction to excipient [None]
  - Product label issue [None]

NARRATIVE: CASE EVENT DATE: 20251120
